FAERS Safety Report 9535507 (Version 7)
Quarter: 2015Q1

REPORT INFORMATION
  Report Type: Report from Study
  Country: US (occurrence: US)
  Receive Date: 20130918
  Receipt Date: 20150211
  Transmission Date: 20150721
  Serious: Yes (Hospitalization, Congenital Anomaly)
  Sender: FDA-Public Use
  Company Number: US-ROCHE-1273782

PATIENT
  Age: 0 Day
  Sex: Male
  Weight: 3.23 kg

DRUGS (2)
  1. OMALIZUMAB [Suspect]
     Active Substance: OMALIZUMAB
     Indication: PRODUCT USED FOR UNKNOWN INDICATION
     Dosage: DATE OF LAST DOSE PRIOR TO SAE THE MOTHER RECEIVED: 01/AUG/2013 AND THE DOSE WAS 375 MG.
     Route: 064
  2. OMALIZUMAB [Suspect]
     Active Substance: OMALIZUMAB
     Route: 063

REACTIONS (12)
  - Foetal heart rate deceleration abnormality [Recovered/Resolved]
  - Otitis media [Unknown]
  - Sinusitis [Unknown]
  - Hydrocele [Recovered/Resolved]
  - Cough [Unknown]
  - Gastroenteritis [Unknown]
  - Candida infection [Unknown]
  - Cardiac murmur functional [Unknown]
  - Vomiting [Unknown]
  - Exposure during breast feeding [Unknown]
  - Bronchiolitis [Unknown]
  - Maternal exposure timing unspecified [Unknown]

NARRATIVE: CASE EVENT DATE: 20130715
